FAERS Safety Report 19449357 (Version 10)
Quarter: 2022Q2

REPORT INFORMATION
  Report Type: Report from Study
  Country: DE (occurrence: DE)
  Receive Date: 20210622
  Receipt Date: 20220406
  Transmission Date: 20220720
  Serious: Yes (Hospitalization, Other)
  Sender: FDA-Public Use
  Company Number: DE-BRISTOL-MYERS SQUIBB COMPANY-BMS-2021-058464

PATIENT
  Age: 83 Year
  Sex: Female
  Weight: 57 kg

DRUGS (11)
  1. SIMVASTATIN [Concomitant]
     Active Substance: SIMVASTATIN
     Indication: Product used for unknown indication
     Dosage: ONGOING
     Route: 048
  2. PANCRELIPASE [Concomitant]
     Active Substance: PANCRELIPASE
     Indication: Product used for unknown indication
     Dosage: ONGOING
     Route: 048
  3. ARCOXIA [Concomitant]
     Active Substance: ETORICOXIB
     Indication: Product used for unknown indication
     Dosage: ONGOING
     Route: 048
     Dates: start: 20210315
  4. SARS-COV-2 VACCINATION [Concomitant]
     Indication: Prophylaxis
     Route: 030
     Dates: start: 20210217
  5. MCP [Concomitant]
     Active Substance: METOCLOPRAMIDE HYDROCHLORIDE
     Indication: Product used for unknown indication
     Dosage: ONGOING
     Route: 048
     Dates: start: 20210506
  6. PANTOPRAZOLE [Concomitant]
     Active Substance: PANTOPRAZOLE
     Indication: Product used for unknown indication
     Dosage: ONGOING
     Route: 048
  7. OPTIDERM [POLIDOCANOL;UREA] [Concomitant]
     Indication: Product used for unknown indication
     Dosage: 1 DOSAGE FORM= 1 UNITS NOS?ONGOING
     Route: 062
     Dates: start: 20210415
  8. METHYLPREDNISOLONE ACEPONATE [Concomitant]
     Active Substance: METHYLPREDNISOLONE ACEPONATE
     Indication: Product used for unknown indication
     Dosage: 1 DOSAGE FORM=2 UNIT NOS?ONGOING
     Route: 062
     Dates: start: 20210415
  9. SOLARAZE [Concomitant]
     Active Substance: DICLOFENAC SODIUM
     Indication: Product used for unknown indication
     Dosage: 1 DOSAGE FORM=2 UNIT NOS?ONGOING
     Route: 062
     Dates: start: 20210324
  10. PREDNISOLONE [Concomitant]
     Active Substance: PREDNISOLONE
     Indication: Alveolitis
     Dosage: 15 MILLIGRAM
     Route: 048
     Dates: start: 20210528, end: 20210603
  11. PREDNISOLONE [Concomitant]
     Active Substance: PREDNISOLONE
     Route: 048
     Dates: start: 20210604, end: 20210615

REACTIONS (1)
  - Pneumonia [Recovered/Resolved]

NARRATIVE: CASE EVENT DATE: 20210615
